FAERS Safety Report 8189715-X (Version None)
Quarter: 2012Q1

REPORT INFORMATION
  Report Type: 
  Country: None (occurrence: None)
  Receive Date: 20120307
  Receipt Date: 20120301
  Transmission Date: 20120608
  Serious: Yes (Life-Threatening)
  Sender: FDA-Public Use
  Company Number: JP-ASTRAZENECA-2012SE07535

PATIENT
  Age: 72 Year
  Sex: Female
  Weight: 64 kg

DRUGS (11)
  1. FENTANYL [Suspect]
     Indication: GENERAL ANAESTHESIA
     Dosage: DOSE UNKNOWN
     Route: 042
     Dates: start: 20111206, end: 20111206
  2. AMLODIPINE [Suspect]
     Indication: HYPERTENSION
     Route: 048
  3. EPINEPHRIN AND PREPARATIONS [Concomitant]
     Indication: EPIDURAL ANAESTHESIA
     Dosage: DOSE UNKNOWN
     Route: 065
  4. CANDESARTAN CILEXETIL [Suspect]
     Indication: HYPERTENSION
     Route: 048
  5. SUGAMMADEX SODIUM [Suspect]
     Dosage: DOSE UNKNOWN
     Route: 065
  6. SUGAMMADEX SODIUM [Suspect]
     Indication: GENERAL ANAESTHESIA
     Dosage: DOSE UNKNOWN
     Route: 042
     Dates: start: 20111206, end: 20111206
  7. ROPIVACAINE HYDROCHLORIDE [Suspect]
     Indication: EPIDURAL ANAESTHESIA
     Dosage: 2 MG/ML, 124 MG EVERY DAY, TOTAL AMOUNT OF ADMINISTRATION: 62 ML
     Route: 008
  8. ROCURONIUM BROMIDE [Suspect]
     Indication: GENERAL ANAESTHESIA
     Dosage: DOSE UNKNOWN
     Route: 042
     Dates: start: 20111206, end: 20111206
  9. SEVOFLURANE [Concomitant]
     Indication: GENERAL ANAESTHESIA
     Dosage: DOSE UNKNOWN
     Route: 055
     Dates: start: 20111206, end: 20111206
  10. ULTIVA [Concomitant]
     Indication: GENERAL ANAESTHESIA
     Dosage: DOSE UNKNOWN
     Route: 042
     Dates: start: 20111206, end: 20111206
  11. XYLOCAINE [Concomitant]
     Indication: EPIDURAL ANAESTHESIA
     Route: 008
     Dates: start: 20111206, end: 20111206

REACTIONS (1)
  - ATRIOVENTRICULAR BLOCK SECOND DEGREE [None]
